FAERS Safety Report 19211072 (Version 1)
Quarter: 2021Q2

REPORT INFORMATION
  Report Type: Report from Study
  Country: None (occurrence: US)
  Receive Date: 20210501
  Receipt Date: 20210501
  Transmission Date: 20210717
  Serious: Yes (Other)
  Sender: FDA-Public Use
  Company Number: US-ABBVIE-21K-163-3880199-00

PATIENT
  Age: 52 Year
  Sex: Female

DRUGS (1)
  1. HUMIRA [Suspect]
     Active Substance: ADALIMUMAB
     Indication: RHEUMATOID ARTHRITIS
     Dosage: CF
     Route: 058

REACTIONS (8)
  - Colitis ulcerative [Unknown]
  - Autoimmune thyroiditis [Unknown]
  - Vertigo [Unknown]
  - Gastrointestinal pain [Unknown]
  - Rheumatoid arthritis [Not Recovered/Not Resolved]
  - Systemic lupus erythematosus [Unknown]
  - Headache [Unknown]
  - Endometriosis [Unknown]

NARRATIVE: CASE EVENT DATE: 202103
